FAERS Safety Report 9815492 (Version 2)
Quarter: 2014Q1

REPORT INFORMATION
  Report Type: Spontaneous
  Country: US (occurrence: US)
  Receive Date: 20140114
  Receipt Date: 20140114
  Transmission Date: 20141002
  Serious: No
  Sender: FDA-Public Use
  Company Number: US-PFIZER INC-2013352940

PATIENT
  Age: 61 Year
  Sex: Male
  Weight: 71.66 kg

DRUGS (3)
  1. SUTENT [Suspect]
     Dosage: 25 MG, DAILY
     Dates: start: 20131120
  2. SUTENT [Suspect]
     Dosage: 37.5 MG, UNK
     Dates: start: 20131204
  3. TRAMADOL [Concomitant]
     Dosage: UNK

REACTIONS (2)
  - Fatigue [Not Recovered/Not Resolved]
  - Abdominal discomfort [Unknown]
